FAERS Safety Report 15020066 (Version 1)
Quarter: 2018Q2

REPORT INFORMATION
  Report Type: Spontaneous
  Country: US (occurrence: US)
  Receive Date: 20180618
  Receipt Date: 20180618
  Transmission Date: 20180711
  Serious: No
  Sender: FDA-Public Use
  Company Number: US-AUROBINDO-AUR-APL-2017-40604

PATIENT
  Sex: Female
  Weight: 58.05 kg

DRUGS (2)
  1. ALEVE [Concomitant]
     Active Substance: NAPROXEN SODIUM
     Indication: PRODUCT USED FOR UNKNOWN INDICATION
     Route: 065
  2. PENICILLIN V POTASSIUM TABLETS USP 500MG [Suspect]
     Active Substance: PENICILLIN V POTASSIUM
     Indication: ENDODONTIC PROCEDURE
     Dosage: 500 MG, UNK
     Route: 048
     Dates: start: 20170817, end: 20170821

REACTIONS (4)
  - Abdominal discomfort [Recovered/Resolved]
  - Reflux gastritis [Not Recovered/Not Resolved]
  - Feeling abnormal [Recovered/Resolved]
  - Nausea [Recovered/Resolved]
